FAERS Safety Report 11420552 (Version 2)
Quarter: 2015Q3

REPORT INFORMATION
  Report Type: Spontaneous
  Country: US (occurrence: US)
  Receive Date: 20150826
  Receipt Date: 20150925
  Transmission Date: 20151125
  Serious: Yes (Other)
  Sender: FDA-Public Use
  Company Number: US-EISAI MEDICAL RESEARCH-EC-2015-009886

PATIENT
  Sex: Male

DRUGS (8)
  1. FYCOMPA [Suspect]
     Active Substance: PERAMPANEL
     Route: 048
     Dates: start: 2015, end: 2015
  2. FYCOMPA [Suspect]
     Active Substance: PERAMPANEL
     Route: 048
     Dates: start: 2015, end: 201508
  3. OXTELLAR XR [Concomitant]
     Active Substance: OXCARBAZEPINE
     Indication: SEIZURE
     Dates: start: 2014
  4. XANAX [Concomitant]
     Active Substance: ALPRAZOLAM
     Indication: ANXIETY
     Dosage: UNKNOWN
     Route: 048
  5. FLOMAX [Concomitant]
     Active Substance: TAMSULOSIN HYDROCHLORIDE
     Indication: PROSTATOMEGALY
     Dosage: UNKNOWN
     Route: 048
  6. FYCOMPA [Suspect]
     Active Substance: PERAMPANEL
     Indication: SEIZURE
     Route: 048
     Dates: start: 2015, end: 2015
  7. VIMPAT [Concomitant]
     Active Substance: LACOSAMIDE
     Indication: SEIZURE
     Route: 048
  8. FYCOMPA [Suspect]
     Active Substance: PERAMPANEL
     Route: 048
     Dates: start: 2015, end: 2015

REACTIONS (5)
  - Anger [Recovered/Resolved]
  - Anxiety [Recovered/Resolved]
  - Homicidal ideation [Recovered/Resolved]
  - Irritability [Recovered/Resolved]
  - Depression [Recovered/Resolved]

NARRATIVE: CASE EVENT DATE: 2015
